FAERS Safety Report 4592048-1 (Version None)
Quarter: 2005Q1

REPORT INFORMATION
  Report Type: 
  Country: None (occurrence: None)
  Receive Date: 20050225
  Receipt Date: 20050201
  Transmission Date: 20050727
  Serious: Yes (Hospitalization)
  Sender: FDA-Public Use
  Company Number: FR-GLAXOSMITHKLINE-B0369551A

PATIENT
  Age: 44 Year
  Sex: Female

DRUGS (3)
  1. MALARONE [Suspect]
     Indication: MALARIA PROPHYLAXIS
     Dosage: 1TAB PER DAY
     Route: 048
     Dates: start: 20041228, end: 20050112
  2. SURGESTONE [Concomitant]
     Dosage: 1TAB SEE DOSAGE TEXT
     Route: 048
     Dates: start: 20041219, end: 20050108
  3. SMECTA [Concomitant]
     Dosage: 1UNIT TWICE PER DAY
     Route: 048
     Dates: start: 20041215, end: 20050106

REACTIONS (1)
  - CHEST PAIN [None]
